FAERS Safety Report 5392025-7 (Version None)
Quarter: 2007Q3

REPORT INFORMATION
  Report Type: 
  Country: None (occurrence: None)
  Receive Date: 20070720
  Receipt Date: 20070718
  Transmission Date: 20080115
  Serious: Yes (Death)
  Sender: FDA-Public Use
  Company Number: AT-BAYER-200713355GDS

PATIENT
  Age: 80 Year
  Sex: Male

DRUGS (3)
  1. AVELOX [Suspect]
     Indication: PROPHYLAXIS
     Dosage: TOTAL DAILY DOSE: 400 MG  UNIT DOSE: 400 MG
     Route: 042
     Dates: start: 20070601, end: 20070601
  2. DEPAKENE [Suspect]
     Indication: EPILEPSY
     Route: 042
     Dates: start: 20070601
  3. MARCUMAR [Concomitant]
     Indication: DRUG USE FOR UNKNOWN INDICATION
     Route: 065

REACTIONS (1)
  - THROMBOCYTOPENIA [None]
